FAERS Safety Report 16700757 (Version 1)
Quarter: 2019Q3

REPORT INFORMATION
  Report Type: Spontaneous
  Country: US (occurrence: US)
  Receive Date: 20190814
  Receipt Date: 20190814
  Transmission Date: 20191004
  Serious: No
  Sender: FDA-Public Use
  Company Number: US-DRREDDYS-USA/USA/19/0112847

PATIENT
  Sex: Female
  Weight: 60.75 kg

DRUGS (7)
  1. CARDIZEM [Concomitant]
     Active Substance: DILTIAZEM HYDROCHLORIDE
  2. NICOTINE. [Suspect]
     Active Substance: NICOTINE
     Indication: TOBACCO USER
     Route: 062
     Dates: start: 20190603
  3. NICOTINE. [Suspect]
     Active Substance: NICOTINE
     Route: 062
  4. NICOTINE. [Suspect]
     Active Substance: NICOTINE
     Dosage: SECOND BOX OF 7 MG STARTED ON 26 JULY 2019.
     Route: 062
     Dates: start: 20190726
  5. ATORVASTATIN [Concomitant]
     Active Substance: ATORVASTATIN
  6. ATENOLOL. [Concomitant]
     Active Substance: ATENOLOL
  7. METHIMAZOLE. [Concomitant]
     Active Substance: METHIMAZOLE

REACTIONS (5)
  - Product dose omission [Unknown]
  - Drug ineffective [Unknown]
  - Product use issue [Unknown]
  - Product quality issue [Unknown]
  - Expired product administered [Unknown]
